FAERS Safety Report 9027798 (Version 1)
Quarter: 2013Q1

REPORT INFORMATION
  Report Type: Report from Study
  Country: CA (occurrence: CA)
  Receive Date: 20130124
  Receipt Date: 20130124
  Transmission Date: 20140127
  Serious: Yes (Hospitalization, Other)
  Sender: FDA-Public Use
  Company Number: CA-JNJFOC-20121203274

PATIENT
  Age: 55 Year
  Sex: Female
  Weight: 54.5 kg

DRUGS (2)
  1. REMICADE [Suspect]
     Indication: CROHN^S DISEASE
     Route: 042
     Dates: start: 20100512
  2. LEVAQUIN [Concomitant]
     Dosage: FOR 10 DAYS
     Route: 048
     Dates: end: 20130104

REACTIONS (5)
  - Hospitalisation [Unknown]
  - Pain [Recovered/Resolved]
  - Cough [Recovered/Resolved]
  - Pyrexia [Recovered/Resolved]
  - Diarrhoea [Recovered/Resolved]
